FAERS Safety Report 19766402 (Version 1)
Quarter: 2021Q3

REPORT INFORMATION
  Report Type: Spontaneous
  Country: CN (occurrence: CN)
  Receive Date: 20210830
  Receipt Date: 20210830
  Transmission Date: 20211014
  Serious: Yes (Other)
  Sender: FDA-Public Use
  Company Number: CN-ELI_LILLY_AND_COMPANY-CN202108007093

PATIENT
  Sex: Female

DRUGS (2)
  1. BASALIN [Concomitant]
     Active Substance: INSULIN GLARGINE
     Indication: DIABETES MELLITUS
     Dosage: 30 U, DAILY LESS THAN 30 UNITS
     Route: 058
  2. HUMALOG [Suspect]
     Active Substance: INSULIN LISPRO
     Indication: DIABETES MELLITUS
     Dosage: 20 U, TID (LESS THAN 20 UNITS)
     Route: 058
     Dates: start: 2009

REACTIONS (6)
  - Cerebral infarction [Unknown]
  - Blood glucose increased [Unknown]
  - Lower limb fracture [Unknown]
  - Fall [Unknown]
  - Gait inability [Unknown]
  - Vascular occlusion [Unknown]

NARRATIVE: CASE EVENT DATE: 202101
